FAERS Safety Report 8733109 (Version 2)
Quarter: 2012Q4

REPORT INFORMATION
  Report Type: 
  Country: US (occurrence: US)
  Receive Date: 20120820
  Receipt Date: 20120924
  Transmission Date: 20130627
  Serious: Yes (Disabling, Other)
  Sender: FDA-Public Use
  Company Number: US-PFIZER INC-2012200580

PATIENT
  Age: 102 Year
  Sex: Female
  Weight: 51.25 kg

DRUGS (3)
  1. ZITHROMAX [Suspect]
     Indication: EAR DISORDER
     Dosage: 250 mg, taken 5 days
     Dates: start: 20120725
  2. DIOVAN (VALSARTAN) [Concomitant]
     Indication: BLOOD PRESSURE ABNORMAL
     Dosage: 320/12.5mg daily
  3. NITRO-DUR [Concomitant]
     Dosage: UNK

REACTIONS (3)
  - Blindness [Not Recovered/Not Resolved]
  - Activities of daily living impaired [Not Recovered/Not Resolved]
  - Eye haemorrhage [Unknown]
